FAERS Safety Report 11250636 (Version 1)
Quarter: 2015Q3

REPORT INFORMATION
  Report Type: Spontaneous
  Country: US (occurrence: US)
  Receive Date: 20150708
  Receipt Date: 20150708
  Transmission Date: 20151125
  Serious: Yes (Death)
  Sender: FDA-Public Use
  Company Number: US-ELI_LILLY_AND_COMPANY-US201011003121

PATIENT
  Sex: Male
  Weight: 48.07 kg

DRUGS (6)
  1. PREDNISONE. [Concomitant]
     Active Substance: PREDNISONE
  2. ALIMTA [Suspect]
     Active Substance: PEMETREXED DISODIUM
     Indication: LUNG NEOPLASM MALIGNANT
     Dosage: 829 MG, UNK
     Route: 065
     Dates: start: 20100827
  3. DILAUDID [Concomitant]
     Active Substance: HYDROMORPHONE HYDROCHLORIDE
  4. FOLIC ACID. [Concomitant]
     Active Substance: FOLIC ACID
     Dosage: 1 MG, UNK
     Route: 048
     Dates: start: 20100819
  5. CORTICOSTEROIDS [Concomitant]
     Active Substance: CORTICOSTEROID NOS
     Dosage: 4 MG/KG, 2/D
     Route: 048
     Dates: start: 20100826
  6. VITAMIN B12 [Concomitant]
     Active Substance: CYANOCOBALAMIN
     Dosage: 1 MG, UNK
     Route: 030
     Dates: start: 20100819

REACTIONS (1)
  - Lung neoplasm malignant [Fatal]
